FAERS Safety Report 16993603 (Version 2)
Quarter: 2020Q1

REPORT INFORMATION
  Report Type: Spontaneous
  Country: FR (occurrence: FR)
  Receive Date: 20191105
  Receipt Date: 20200116
  Transmission Date: 20200409
  Serious: Yes (Life-Threatening)
  Sender: FDA-Public Use
  Company Number: FR-SUN PHARMACEUTICAL INDUSTRIES LTD-2019RR-226326

PATIENT
  Age: 72 Year
  Sex: Female

DRUGS (3)
  1. GABAPENTINE [Suspect]
     Active Substance: GABAPENTIN
     Indication: EPILEPSY
     Dosage: 2400 MILLIGRAM, DAILY
     Route: 048
     Dates: start: 2010, end: 20190318
  2. SERTRALINE [Concomitant]
     Active Substance: SERTRALINE HYDROCHLORIDE
     Indication: DEPRESSION
     Dosage: 100 MILLIGRAM, DAILY
     Route: 048
     Dates: start: 2010, end: 20190318
  3. TERALITHE [Concomitant]
     Active Substance: LITHIUM CARBONATE
     Indication: DEPRESSION
     Dosage: 1.5 DOSAGE FORM, DAILY
     Route: 048
     Dates: start: 2010, end: 20190318

REACTIONS (2)
  - Coma [Recovered/Resolved]
  - Miosis [Recovered/Resolved]

NARRATIVE: CASE EVENT DATE: 20190204
